FAERS Safety Report 7394806-7 (Version None)
Quarter: 2011Q2

REPORT INFORMATION
  Report Type: 
  Country: None (occurrence: None)
  Receive Date: 20110405
  Receipt Date: 20110329
  Transmission Date: 20111010
  Serious: Yes (Hospitalization)
  Sender: FDA-Public Use
  Company Number: A0773173A

PATIENT
  Age: 54 Year
  Sex: Female
  Weight: 91.4 kg

DRUGS (9)
  1. PLAVIX [Concomitant]
  2. ALTACE [Concomitant]
  3. GLUCOTROL [Concomitant]
  4. ADVAIR DISKUS 100/50 [Concomitant]
  5. TRAMADOL [Concomitant]
  6. NEXIUM [Concomitant]
  7. TOPROL-XL [Concomitant]
  8. ATENOLOL [Concomitant]
  9. AVANDIA [Suspect]
     Indication: DIABETES MELLITUS
     Dosage: 8MG PER DAY
     Route: 048
     Dates: start: 20041221, end: 20070101

REACTIONS (2)
  - CEREBROVASCULAR ACCIDENT [None]
  - CARDIAC FAILURE CONGESTIVE [None]
